FAERS Safety Report 19464416 (Version 2)
Quarter: 2021Q2

REPORT INFORMATION
  Report Type: Spontaneous
  Country: JP (occurrence: JP)
  Receive Date: 20210626
  Receipt Date: 20210626
  Transmission Date: 20210717
  Serious: Yes (Hospitalization, Other)
  Sender: FDA-Public Use
  Company Number: JP-JNJFOC-A-CH2019-194863

PATIENT
  Age: 35 Year
  Sex: Female
  Weight: 69.1 kg

DRUGS (25)
  1. UPTRAVI [Suspect]
     Active Substance: SELEXIPAG
     Route: 048
     Dates: start: 20190617, end: 20190623
  2. UPTRAVI [Suspect]
     Active Substance: SELEXIPAG
     Route: 048
     Dates: start: 20190624, end: 20190626
  3. UPTRAVI [Suspect]
     Active Substance: SELEXIPAG
     Route: 048
     Dates: start: 20190920, end: 20191114
  4. ACTONEL [Concomitant]
     Active Substance: RISEDRONATE SODIUM
  5. BISOPROLOL FUMARATE. [Concomitant]
     Active Substance: BISOPROLOL FUMARATE
     Indication: ARRHYTHMIA
  6. XYZAL [Concomitant]
     Active Substance: LEVOCETIRIZINE DIHYDROCHLORIDE
  7. OPSUMIT [Concomitant]
     Active Substance: MACITENTAN
     Indication: PULMONARY ARTERIAL HYPERTENSION
     Route: 048
  8. EDIROL [Concomitant]
     Active Substance: ELDECALCITOL
  9. ASPARA?CA [Concomitant]
     Active Substance: CALCIUM ASPARTATE
  10. PREDNISOLONE. [Concomitant]
     Active Substance: PREDNISOLONE
     Indication: MIXED CONNECTIVE TISSUE DISEASE
  11. FOLIAMIN [Concomitant]
     Active Substance: FOLIC ACID
  12. OPIUM ALKALOIDS TOTAL [Concomitant]
     Active Substance: OPIUM
  13. UPTRAVI [Suspect]
     Active Substance: SELEXIPAG
     Route: 048
     Dates: start: 20190627, end: 20190711
  14. UPTRAVI [Suspect]
     Active Substance: SELEXIPAG
     Route: 048
     Dates: start: 20191213
  15. ADCIRCA [Concomitant]
     Active Substance: TADALAFIL
     Indication: PULMONARY ARTERIAL HYPERTENSION
  16. MAGMITT [Concomitant]
     Active Substance: MAGNESIUM OXIDE
  17. MECOBALAMIN [Concomitant]
     Active Substance: METHYLCOBALAMIN
  18. UPTRAVI [Suspect]
     Active Substance: SELEXIPAG
     Indication: PULMONARY ARTERIAL HYPERTENSION
     Route: 048
     Dates: start: 20190607, end: 20190608
  19. TAKECAB [Concomitant]
     Active Substance: VONOPRAZAN FUMARATE
  20. UPTRAVI [Suspect]
     Active Substance: SELEXIPAG
     Route: 048
     Dates: start: 20190712, end: 20190919
  21. UPTRAVI [Suspect]
     Active Substance: SELEXIPAG
     Route: 048
     Dates: start: 20191115, end: 20191212
  22. POLAPREZINC [Concomitant]
     Active Substance: POLAPREZINC
  23. FERROUS SODIUM CITRATE [Concomitant]
     Active Substance: SODIUM FERROUS CITRATE
  24. DOMPERIDONE [Concomitant]
     Active Substance: DOMPERIDONE
  25. DINAGEST [Concomitant]
     Active Substance: DIENOGEST

REACTIONS (3)
  - Abdominal pain upper [Recovered/Resolved]
  - Headache [Recovered/Resolved]
  - Meningitis [Recovered/Resolved]

NARRATIVE: CASE EVENT DATE: 20190607
